FAERS Safety Report 4718872-X (Version None)
Quarter: 2005Q3

REPORT INFORMATION
  Report Type: 
  Country: None (occurrence: None)
  Receive Date: 20050719
  Receipt Date: 20050630
  Transmission Date: 20060218
  Serious: Yes (Other)
  Sender: FDA-Public Use
  Company Number: FR_050706743

PATIENT
  Age: 72 Year
  Sex: Female

DRUGS (3)
  1. FORTEO [Suspect]
     Indication: OSTEOPOROSIS
     Dosage: 20 UG DAY
     Dates: start: 20041005
  2. VENTOLINE    /00139501/(SALBUTAMOL   /00139501/) [Concomitant]
  3. SEREVENT [Concomitant]

REACTIONS (3)
  - ARRHYTHMIA [None]
  - DYSPNOEA [None]
  - HYPERTENSION [None]
